FAERS Safety Report 7219324-8 (Version None)
Quarter: 2011Q1

REPORT INFORMATION
  Report Type: 
  Country: None (occurrence: None)
  Receive Date: 20110111
  Receipt Date: 20101231
  Transmission Date: 20110831
  Serious: Yes (Death)
  Sender: FDA-Public Use
  Company Number: US-PFIZER INC-2011004729

PATIENT
  Age: 36 Year
  Sex: Female

DRUGS (4)
  1. MORPHINE [Suspect]
  2. LEVOTHYROXINE [Suspect]
  3. CLONAZEPAM [Suspect]
  4. ALPRAZOLAM [Suspect]

REACTIONS (3)
  - RESPIRATORY ARREST [None]
  - CARDIAC ARREST [None]
  - COMPLETED SUICIDE [None]
